FAERS Safety Report 5181126-4 (Version None)
Quarter: 2006Q4

REPORT INFORMATION
  Report Type: 
  Country: None (occurrence: None)
  Receive Date: 20061215
  Receipt Date: 20061215
  Transmission Date: 20070319
  Serious: Yes (Hospitalization)
  Sender: FDA-Public Use
  Company Number: None

PATIENT
  Age: 2 Day
  Sex: Male

DRUGS (1)
  1. ULTRAM [Suspect]
     Indication: BACK PAIN
     Dosage: 100 MG EVERY 4 HOURS PO
     Route: 048
     Dates: start: 20060310, end: 20061212

REACTIONS (11)
  - CRYING [None]
  - DIARRHOEA NEONATAL [None]
  - DRUG EXPOSURE DURING PREGNANCY [None]
  - DRUG WITHDRAWAL SYNDROME NEONATAL [None]
  - HYPERHIDROSIS [None]
  - HYPERTONIA NEONATAL [None]
  - ILL-DEFINED DISORDER [None]
  - LIVEDO RETICULARIS [None]
  - NEONATAL DISORDER [None]
  - PSYCHOMOTOR HYPERACTIVITY [None]
  - TREMOR NEONATAL [None]
